FAERS Safety Report 15650691 (Version 2)
Quarter: 2019Q1

REPORT INFORMATION
  Report Type: Report from Study
  Country: ES (occurrence: ES)
  Receive Date: 20181123
  Receipt Date: 20190219
  Transmission Date: 20190417
  Serious: Yes (Other)
  Sender: FDA-Public Use
  Company Number: ES-TEVA-2018-ES-977835

PATIENT
  Sex: Female

DRUGS (1)
  1. COPAXONE [Suspect]
     Active Substance: GLATIRAMER ACETATE
     Indication: MULTIPLE SCLEROSIS
     Route: 058
     Dates: start: 20161026

REACTIONS (3)
  - Papilloma [Recovering/Resolving]
  - Immunosuppression [Unknown]
  - Uterine cancer [Recovering/Resolving]

NARRATIVE: CASE EVENT DATE: 2018
